FAERS Safety Report 11778647 (Version 2)
Quarter: 2015Q4

REPORT INFORMATION
  Report Type: Spontaneous
  Country: BR (occurrence: BR)
  Receive Date: 20151125
  Receipt Date: 20151224
  Transmission Date: 20160304
  Serious: Yes (Hospitalization)
  Sender: FDA-Public Use
  Company Number: BR-PFIZER INC-2015359767

PATIENT
  Age: 56 Year
  Sex: Female
  Weight: 52 kg

DRUGS (4)
  1. SUTENT [Suspect]
     Active Substance: SUNITINIB MALATE
     Dosage: UNSPECIFIED DOSE, ^DAY YES, DAY NO^
     Dates: start: 20151030
  2. CODEIN [Concomitant]
     Active Substance: CODEINE
     Dosage: UNK
     Dates: start: 20151019
  3. FLORINEFE [Concomitant]
     Dosage: UNK
     Dates: start: 20151009
  4. SUTENT [Suspect]
     Active Substance: SUNITINIB MALATE
     Indication: METASTATIC RENAL CELL CARCINOMA
     Dosage: 50 MG, CYCLIC (4X2)
     Route: 048
     Dates: start: 20151009

REACTIONS (7)
  - Asthenia [Not Recovered/Not Resolved]
  - Reflux gastritis [Recovered/Resolved]
  - Vomiting [Not Recovered/Not Resolved]
  - Secretion discharge [Recovered/Resolved]
  - Diarrhoea [Not Recovered/Not Resolved]
  - Dysphagia [Not Recovered/Not Resolved]
  - Throat irritation [Recovered/Resolved]

NARRATIVE: CASE EVENT DATE: 20151013
